FAERS Safety Report 14874073 (Version 2)
Quarter: 2018Q2

REPORT INFORMATION
  Report Type: Spontaneous
  Country: IT (occurrence: IT)
  Receive Date: 20180510
  Receipt Date: 20180516
  Transmission Date: 20180711
  Serious: Yes (Other)
  Sender: FDA-Public Use
  Company Number: PHHY2018IT003017

PATIENT
  Sex: Female

DRUGS (3)
  1. DEFERASIROX [Suspect]
     Active Substance: DEFERASIROX
     Dosage: 90 MG, (5 DAYS PER WEEK)
     Route: 065
     Dates: start: 201803
  2. DEFERASIROX [Suspect]
     Active Substance: DEFERASIROX
     Dosage: UNK
     Route: 065
     Dates: end: 20180407
  3. DEFERASIROX [Suspect]
     Active Substance: DEFERASIROX
     Indication: PRODUCT USED FOR UNKNOWN INDICATION
     Dosage: 90 MG, (7 DAYS PER WEEK)
     Route: 065
     Dates: start: 20180213

REACTIONS (3)
  - Diabetes insipidus [Unknown]
  - Serum ferritin increased [Unknown]
  - Thirst [Unknown]
